FAERS Safety Report 9240597 (Version 1)
Quarter: 2013Q1

REPORT INFORMATION
  Report Type: Spontaneous
  Country: US (occurrence: None)
  Receive Date: 20121120
  Receipt Date: 20121120
  Transmission Date: 20140127
  Serious: No
  Sender: FDA-Public Use
  Company Number: 1000038406

PATIENT
  Age: 64 Year
  Sex: Female

DRUGS (6)
  1. VIIBRYD (VILAZODONE) [Suspect]
     Indication: DEPRESSION
     Route: 048
     Dates: start: 20120802, end: 20120809
  2. IMIPRAMINE (IMIPRAMINE) [Concomitant]
  3. WELLBUTRIN (BUPROPION) HYDROCHLORIDE) [Concomitant]
  4. ADDERALL  (OBETROL) [Concomitant]
  5. LORAZEPAM [Concomitant]
  6. CYTOMEL (LIOTHYRONINE SODIUM) [Concomitant]

REACTIONS (3)
  - Insomnia [None]
  - Dizziness [None]
  - Frequent bowel movements [None]
